FAERS Safety Report 15896049 (Version 1)
Quarter: 2019Q1

REPORT INFORMATION
  Report Type: Spontaneous
  Country: US (occurrence: US)
  Receive Date: 20190131
  Receipt Date: 20190131
  Transmission Date: 20190417
  Serious: No
  Sender: FDA-Public Use
  Company Number: US-SA-2019SA024992

PATIENT
  Sex: Female

DRUGS (14)
  1. PRALUENT [Suspect]
     Active Substance: ALIROCUMAB
     Indication: HYPERCHOLESTEROLAEMIA
     Dosage: 1 DF, QOW
     Route: 058
     Dates: start: 2018
  2. MONTELUKAST [Concomitant]
     Active Substance: MONTELUKAST SODIUM
  3. GABAPENTIN. [Concomitant]
     Active Substance: GABAPENTIN
  4. TRAMADOL. [Concomitant]
     Active Substance: TRAMADOL
  5. TIZANIDINE. [Concomitant]
     Active Substance: TIZANIDINE
  6. LISINOPRIL. [Concomitant]
     Active Substance: LISINOPRIL
  7. CLOPIDOGREL [Concomitant]
     Active Substance: CLOPIDOGREL BISULFATE
  8. ALPRAZOLAM. [Concomitant]
     Active Substance: ALPRAZOLAM
  9. ROSUVASTATIN CALCIUM. [Concomitant]
     Active Substance: ROSUVASTATIN CALCIUM
  10. ONDANSETRON [Concomitant]
     Active Substance: ONDANSETRON
  11. DULOXETINE. [Concomitant]
     Active Substance: DULOXETINE
  12. METOPROLOL SUCCINATE. [Concomitant]
     Active Substance: METOPROLOL SUCCINATE
  13. HYDROCODONE/ACETAMINOPHEN [Concomitant]
     Active Substance: ACETAMINOPHEN\HYDROCODONE
  14. AMLODIPINE BESYLATE. [Concomitant]
     Active Substance: AMLODIPINE BESYLATE

REACTIONS (3)
  - Arthralgia [Recovered/Resolved]
  - Myalgia [Recovered/Resolved]
  - Injection site bruising [Recovered/Resolved]
